FAERS Safety Report 14705791 (Version 1)
Quarter: 2018Q1

REPORT INFORMATION
  Report Type: Spontaneous
  Country: US (occurrence: US)
  Receive Date: 20180329
  Receipt Date: 20180329
  Transmission Date: 20180509
  Serious: Yes (Death)
  Sender: FDA-Public Use
  Company Number: None

PATIENT
  Age: 43 Year
  Sex: Female

DRUGS (1)
  1. CAPECITABINE 500MG TAB GENENTECH [Suspect]
     Active Substance: CAPECITABINE
     Indication: GASTRIC CANCER
     Dosage: 3  TABS  M-F ON DAYS OF RADATION?BID ORAL
     Route: 048
     Dates: start: 20180112, end: 20180201

REACTIONS (1)
  - Death [None]

NARRATIVE: CASE EVENT DATE: 20180329
